FAERS Safety Report 19559532 (Version 1)
Quarter: 2021Q3

REPORT INFORMATION
  Report Type: Spontaneous
  Country: US (occurrence: US)
  Receive Date: 20210714
  Receipt Date: 20210714
  Transmission Date: 20211014
  Serious: Yes (Other)
  Sender: FDA-Public Use
  Company Number: US-SK LIFE SCIENCE, INC-SKPVG-2020-000087

PATIENT

DRUGS (13)
  1. XCOPRI [Suspect]
     Active Substance: CENOBAMATE
     Indication: SEIZURE
     Dosage: 12.5 MILLIGRAM, QD
     Route: 048
     Dates: start: 20200626
  2. ACYCLOVIR                          /00587301/ [Concomitant]
     Active Substance: ACYCLOVIR
     Indication: ORAL HERPES
     Dosage: 40 MILLIGRAM AS NEEDED
     Route: 065
  3. KEPPRA [Suspect]
     Active Substance: LEVETIRACETAM
     Dosage: 1000 MG IN THE MORNING AND 1350 IN THE EVENING
     Route: 065
  4. XCOPRI [Suspect]
     Active Substance: CENOBAMATE
     Dosage: 25 MILLIGRAM, QD
     Route: 048
     Dates: start: 20200711
  5. ANTIVERT                           /00007101/ [Concomitant]
     Active Substance: MECLIZINE MONOHYDROCHLORIDE\NIACIN
     Indication: VERTIGO
     Dosage: UNK, PRN
     Route: 065
  6. ACYCLOVIR                          /00587301/ [Concomitant]
     Active Substance: ACYCLOVIR
     Indication: HERPES VIRUS INFECTION
  7. KEPPRA [Suspect]
     Active Substance: LEVETIRACETAM
     Indication: SEIZURE
     Dosage: 1000 MILLIGRAM IN THE MORNING AND 1750 MG IN THE EVENING
     Route: 065
  8. ATORVASTATIN [Concomitant]
     Active Substance: ATORVASTATIN
     Indication: PRODUCT USED FOR UNKNOWN INDICATION
     Dosage: 40 MILLIGRAM, QD
     Route: 065
  9. VIMPAT [Concomitant]
     Active Substance: LACOSAMIDE
     Indication: SEIZURE
     Dosage: 150 MG AM AND 200 MG IN THE PM AND 50 MG PM (250 MG TOTAL PM)
     Route: 065
  10. PRIMIDONE. [Concomitant]
     Active Substance: PRIMIDONE
     Indication: SEIZURE
     Dosage: 100 MILLIGRAM, BID (100 MG EACH IN THE AM AND PM )
     Route: 065
  11. ASPIRIN                            /00002701/ [Concomitant]
     Active Substance: ASPIRIN
     Indication: PRODUCT USED FOR UNKNOWN INDICATION
     Dosage: 81 MILLIGRAM, QD
     Route: 065
  12. OMEPRAZOLE. [Concomitant]
     Active Substance: OMEPRAZOLE
     Indication: PRODUCT USED FOR UNKNOWN INDICATION
     Dosage: 40 MILLIGRAM, QD
     Route: 065
  13. PROBIOTIC                          /06395501/ [Concomitant]
     Active Substance: BIFIDOBACTERIUM ANIMALIS LACTIS
     Indication: PRODUCT USED FOR UNKNOWN INDICATION
     Dosage: UNK, QD
     Route: 065

REACTIONS (12)
  - Gastrointestinal viral infection [Recovering/Resolving]
  - Nausea [Recovered/Resolved]
  - Crying [Recovering/Resolving]
  - Diarrhoea [Recovered/Resolved]
  - Feeling abnormal [Recovering/Resolving]
  - Weight decreased [Recovering/Resolving]
  - Balance disorder [Recovering/Resolving]
  - Nausea [Recovered/Resolved]
  - Depression [Recovering/Resolving]
  - Mental impairment [Recovering/Resolving]
  - Insomnia [Recovering/Resolving]
  - Fatigue [Recovering/Resolving]

NARRATIVE: CASE EVENT DATE: 20200626
